FAERS Safety Report 8503883-9 (Version None)
Quarter: 2012Q3

REPORT INFORMATION
  Report Type: 
  Country: None (occurrence: None)
  Receive Date: 20120711
  Receipt Date: 20120703
  Transmission Date: 20120928
  Serious: Yes (Hospitalization)
  Sender: FDA-Public Use
  Company Number: US-JNJFOC-20120702530

PATIENT
  Age: 74 Year
  Sex: Male
  Weight: 92.13 kg

DRUGS (6)
  1. AMIODARONE HCL [Concomitant]
     Indication: PRODUCT USED FOR UNKNOWN INDICATION
     Route: 048
  2. XARELTO [Suspect]
     Route: 048
     Dates: start: 20120326, end: 20120418
  3. XARELTO [Suspect]
     Route: 048
     Dates: start: 20120419
  4. XARELTO [Suspect]
     Indication: ATRIAL FIBRILLATION
     Route: 048
     Dates: start: 20120326, end: 20120418
  5. XARELTO [Suspect]
     Indication: CEREBROVASCULAR ACCIDENT PROPHYLAXIS
     Route: 048
     Dates: start: 20120419
  6. DOFETILIDE [Suspect]
     Indication: ATRIAL FIBRILLATION
     Route: 048

REACTIONS (3)
  - HAEMATURIA [None]
  - EPISTAXIS [None]
  - TORSADE DE POINTES [None]
